FAERS Safety Report 6601963-6 (Version None)
Quarter: 2010Q1

REPORT INFORMATION
  Report Type: 
  Country: None (occurrence: None)
  Receive Date: 20100225
  Receipt Date: 20100218
  Transmission Date: 20100710
  Serious: Yes (Death, Hospitalization)
  Sender: FDA-Public Use
  Company Number: SE-MERCK-1002SWE00017

PATIENT
  Age: 63 Year
  Sex: Female

DRUGS (3)
  1. COZAAR [Suspect]
     Route: 065
  2. SPIRONOLACTONE [Suspect]
     Route: 065
  3. POTASSIUM (UNSPECIFIED) [Suspect]
     Route: 065

REACTIONS (2)
  - CARDIAC ARREST [None]
  - HYPERKALAEMIA [None]
